FAERS Safety Report 24958500 (Version 2)
Quarter: 2025Q1

REPORT INFORMATION
  Report Type: Report from Study
  Country: US (occurrence: US)
  Receive Date: 20250212
  Receipt Date: 20250227
  Transmission Date: 20250409
  Serious: Yes (Other)
  Sender: TAKEDA
  Company Number: US-TAKEDA-2024TUS078095

PATIENT
  Age: 65 Year
  Sex: Male

DRUGS (2)
  1. VEDOLIZUMAB [Suspect]
     Active Substance: VEDOLIZUMAB
     Indication: Colitis ulcerative
     Dosage: 108 MILLIGRAM, Q2WEEKS
     Dates: end: 20250117
  2. VEDOLIZUMAB [Suspect]
     Active Substance: VEDOLIZUMAB

REACTIONS (21)
  - Erectile dysfunction [Unknown]
  - Neuropathy peripheral [Unknown]
  - Intestinal obstruction [Unknown]
  - Large intestinal stenosis [Unknown]
  - Multiple sclerosis [Unknown]
  - Urinary tract obstruction [Unknown]
  - Colonoscopy abnormal [Unknown]
  - Malaise [Unknown]
  - Benign prostatic hyperplasia [Unknown]
  - Pain [Unknown]
  - Blood pressure decreased [Unknown]
  - Obstructive sleep apnoea syndrome [Unknown]
  - Osteoarthritis [Unknown]
  - Glucose tolerance impaired [Unknown]
  - Product dose omission issue [Unknown]
  - Trigeminal neuralgia [Unknown]
  - Cardiovascular disorder [Unknown]
  - Abdominal pain [Unknown]
  - Dyspepsia [Unknown]
  - Hypertension [Unknown]
  - Product use issue [Recovered/Resolved]

NARRATIVE: CASE EVENT DATE: 20250117
